FAERS Safety Report 9939383 (Version 1)
Quarter: 2014Q1

REPORT INFORMATION
  Report Type: Spontaneous
  Country: CA (occurrence: CA)
  Receive Date: 20140303
  Receipt Date: 20140303
  Transmission Date: 20141002
  Serious: Yes (Life-Threatening, Hospitalization)
  Sender: FDA-Public Use
  Company Number: CA-BAYER-2014-028302

PATIENT
  Age: 33 Year
  Sex: Female
  Weight: 103.86 kg

DRUGS (8)
  1. YASMIN 28 [Suspect]
     Dosage: 1 DOSAGE FORM, EVERY 1 DAY(S)
     Route: 048
  2. ADVAIR [Concomitant]
     Dosage: UNK
  3. CYCLOBENZAPRINE [Concomitant]
     Dosage: UNK
  4. FRAGMIN [Concomitant]
     Dosage: UNK
     Route: 042
  5. HYDROMORPHONE [Concomitant]
     Dosage: UNK
  6. NAPROXEN [Concomitant]
     Dosage: UNK
  7. RATIO-SALBUTAMOL HFA [Concomitant]
     Dosage: UNK
  8. ZOPICLONE [Concomitant]
     Dosage: UNK

REACTIONS (2)
  - Pulmonary embolism [None]
  - Thrombophlebitis superficial [None]
